FAERS Safety Report 15198174 (Version 5)
Quarter: 2019Q3

REPORT INFORMATION
  Report Type: Report from Study
  Country: DE (occurrence: DE)
  Receive Date: 20180725
  Receipt Date: 20190703
  Transmission Date: 20191004
  Serious: Yes (Death)
  Sender: FDA-Public Use
  Company Number: GB-MYLANLABS-2018M1053933

PATIENT
  Age: 60 Year
  Sex: Female
  Weight: 40 kg

DRUGS (74)
  1. EUGLUCON [Suspect]
     Active Substance: GLYBURIDE
     Dosage: 1 DF, QD
     Route: 048
     Dates: start: 19980820, end: 19980821
  2. DIGIMERCK [Suspect]
     Active Substance: DIGITOXIN
     Indication: CARDIAC FAILURE
     Dosage: 1 DF, QD
     Route: 048
     Dates: start: 19980812
  3. VANCOMYCIN [Suspect]
     Active Substance: VANCOMYCIN
     Indication: PNEUMONIA
     Dosage: 500 MILLIGRAM
     Route: 042
     Dates: start: 19980821, end: 19980826
  4. DILATREND [Suspect]
     Active Substance: CARVEDILOL
     Indication: HYPERTENSION
     Dosage: 13 MILLIGRAM, QD
     Route: 048
     Dates: start: 19980811
  5. DILATREND [Suspect]
     Active Substance: CARVEDILOL
     Dosage: 6.25 MILLIGRAM
     Route: 048
     Dates: start: 19980811
  6. PASPERTIN                          /00041902/ [Suspect]
     Active Substance: METOCLOPRAMIDE HYDROCHLORIDE
     Indication: NAUSEA
     Dosage: 60 GTT (DAILY DOSE),
     Route: 042
     Dates: start: 19980808, end: 19980826
  7. LOPIRIN COR [Suspect]
     Active Substance: CAPTOPRIL
     Indication: HYPERTENSION
     Dosage: 1 DOSAGE FORM, BID
     Route: 048
     Dates: end: 19980806
  8. KALINOR-BRAUSETABLETTEN [Concomitant]
     Active Substance: POTASSIUM CARBONATE\POTASSIUM CITRATE
     Dosage: 1 DF, QD
     Route: 048
     Dates: start: 19980824, end: 19980825
  9. SORTIS [Concomitant]
     Active Substance: ATORVASTATIN
     Indication: LIPIDS INCREASED
     Dosage: 10 MG, QD
     Route: 048
     Dates: start: 19980826
  10. PARACETAMOL [Concomitant]
     Active Substance: ACETAMINOPHEN
     Dosage: 1 DOSAGE FORM, QD
     Route: 048
     Dates: start: 19980826
  11. STEROFUNDIN [Concomitant]
     Active Substance: CALCIUM CHLORIDE\MAGNESIUM CHLORIDE\POTASSIUM CHLORIDE\SODIUM ACETATE\SODIUM CHLORIDE
     Indication: FLUID REPLACEMENT
     Dosage: 4500 ML (APPROX.) OF STEROFUNDIN OVER THIS PERIOD
     Route: 042
     Dates: start: 19980821, end: 19980828
  12. GLUCOSE [Concomitant]
     Active Substance: DEXTROSE
     Indication: FLUID REPLACEMENT
     Dosage: 500 MILLIGRAM
     Route: 042
     Dates: start: 19980824, end: 19980824
  13. LOPIRIN COR [Suspect]
     Active Substance: CAPTOPRIL
     Indication: HYPERTONIA
     Dosage: 1 DOSAGE FORM, BID
     Route: 048
     Dates: end: 19980806
  14. IRENAT [Concomitant]
     Active Substance: SODIUM PERCHLORATE
     Indication: HYPERTHYROIDISM
     Dosage: 20 GTT DROPS, QD
     Route: 048
     Dates: end: 19980828
  15. DEXTROSE. [Concomitant]
     Active Substance: DEXTROSE
     Indication: FLUID REPLACEMENT
     Dosage: 500 MILLILITER, TOTAL
     Route: 042
     Dates: start: 19980824, end: 19980824
  16. DOPMIN                             /00360701/ [Concomitant]
     Indication: CIRCULATORY COLLAPSE
     Dosage: AS PER BODY WEIGHT
     Route: 042
     Dates: start: 19980808, end: 19980808
  17. UNAT [Suspect]
     Active Substance: TORSEMIDE
     Indication: CARDIAC FAILURE
     Dosage: 40 MG, QD
     Route: 048
     Dates: start: 19980808
  18. EUGLUCON [Suspect]
     Active Substance: GLYBURIDE
     Dosage: 1 DF, QD
     Route: 048
  19. XANEF                              /00574902/ [Suspect]
     Active Substance: ENALAPRIL MALEATE
     Indication: HYPERTENSION
     Dosage: 5 MILLIGRAM
     Route: 048
     Dates: start: 19980818
  20. PASPERTIN                          /00041902/ [Suspect]
     Active Substance: METOCLOPRAMIDE HYDROCHLORIDE
     Dosage: 60 GTT (DAILY DOSE), , ORAL
     Route: 048
     Dates: start: 19980820, end: 19980820
  21. PASPERTIN                          /00041902/ [Suspect]
     Active Substance: METOCLOPRAMIDE HYDROCHLORIDE
     Dosage: 60 DROP, QD
     Route: 048
     Dates: start: 19980814, end: 19980818
  22. ENALAPRIL MALEATE. [Suspect]
     Active Substance: ENALAPRIL MALEATE
     Indication: HYPERTENSION
     Dosage: 10 MG, QD
     Route: 048
     Dates: start: 19980811, end: 19980817
  23. LASIX [Suspect]
     Active Substance: FUROSEMIDE
     Indication: CARDIAC FAILURE
     Dosage: 1 DF, QD
     Route: 048
     Dates: end: 19980406
  24. KALIUM-DURILES [Concomitant]
     Active Substance: POTASSIUM
     Indication: HYPOKALAEMIA
     Dosage: 6 MILLIMOLE, QH
     Route: 042
     Dates: start: 19980828, end: 19980828
  25. SOLU-DECORTIN-H [Concomitant]
     Active Substance: PREDNISOLONE SODIUM SUCCINATE
     Indication: ERYTHEMA
     Dosage: 1 DOSAGE FORM
     Route: 042
     Dates: start: 19980826, end: 19980826
  26. CARBIMAZOL [Concomitant]
     Active Substance: CARBIMAZOLE
     Indication: HYPERTHYROIDISM
     Dosage: 10 MILLIGRAM BID/TID;
     Route: 048
  27. POTASSIUM CITRATE. [Concomitant]
     Active Substance: POTASSIUM CITRATE
     Indication: BLOOD POTASSIUM DECREASED
     Dosage: 1 DOSAGE FORM, QD
     Route: 048
     Dates: start: 19980821, end: 19980821
  28. POTASSIUM CHLORIDE. [Concomitant]
     Active Substance: POTASSIUM CHLORIDE
     Indication: BLOOD POTASSIUM DECREASED
     Dosage: 2 DOSAGE FORM, QD
     Route: 048
     Dates: start: 19980814, end: 19980814
  29. PASPERTIN                          /00041902/ [Suspect]
     Active Substance: METOCLOPRAMIDE HYDROCHLORIDE
     Dosage: 20 GTT, UNK
     Route: 048
     Dates: start: 19980814, end: 19980818
  30. PASPERTIN                          /00041902/ [Suspect]
     Active Substance: METOCLOPRAMIDE HYDROCHLORIDE
     Dosage: 1 DOSAGE FORM, QD
     Route: 042
     Dates: start: 19980808, end: 19980826
  31. PASPERTIN                          /00041902/ [Suspect]
     Active Substance: METOCLOPRAMIDE HYDROCHLORIDE
     Dosage: 1 DOSAGE FORM, QD
     Route: 048
     Dates: start: 19980820, end: 19980820
  32. KALIUM-DURILES [Concomitant]
     Active Substance: POTASSIUM
     Dosage: 2 DOSAGE FORM, TOTAL
     Route: 048
     Dates: start: 19980814, end: 19980814
  33. AMINOQUINURIDE HYDROCHLORIDE [Concomitant]
     Indication: DIABETES MELLITUS
     Dosage: 8 IU (DAILY DOSE), , SUBCUTANEOUS
     Route: 058
  34. KALIUMCHLORID [Concomitant]
     Active Substance: POTASSIUM CHLORIDE
     Indication: BLOOD POTASSIUM DECREASED
     Dosage: 2 DF, QD
     Route: 048
     Dates: start: 19980814, end: 19980814
  35. KALIUMCHLORID [Concomitant]
     Active Substance: POTASSIUM CHLORIDE
     Dosage: 1 DOSAGE FORM
     Route: 048
     Dates: start: 19980818, end: 19980820
  36. HEPARIN-CALCIUM [Suspect]
     Active Substance: HEPARIN CALCIUM
     Indication: THROMBOSIS PROPHYLAXIS
     Dosage: 15000 IU, QD
     Route: 058
     Dates: start: 19980811, end: 19980818
  37. BENZYLPENICILLIN SODIUM [Suspect]
     Active Substance: PENICILLIN G SODIUM
     Indication: PNEUMONIA
     Dosage: 20 MILLION IU, QD
     Route: 042
     Dates: start: 19980821, end: 19980826
  38. ANTRA                              /00661201/ [Concomitant]
     Active Substance: OMEPRAZOLE
     Indication: PROPHYLAXIS AGAINST GASTROINTESTINAL ULCER
     Dosage: 20 MILLIGRAM
     Route: 048
     Dates: end: 19980818
  39. KALIUM-DURILES [Concomitant]
     Active Substance: POTASSIUM
     Indication: BLOOD POTASSIUM DECREASED
     Dosage: 3 DF, QD
     Route: 048
     Dates: start: 19980818, end: 19980820
  40. TAVEGIL                            /00137201/ [Concomitant]
     Active Substance: CLEMASTINE FUMARATE
     Indication: ERYTHEMA
     Dosage: 1 DOSAGE FORM, QD
     Route: 042
     Dates: start: 19980826, end: 19980826
  41. KALIUMCHLORID [Concomitant]
     Active Substance: POTASSIUM CHLORIDE
     Dosage: 6 MILLIMOLE
     Route: 042
     Dates: start: 19980828, end: 19980828
  42. ERYFER                             /00023503/ [Concomitant]
     Indication: ANAEMIA
     Dosage: 1 DOSAGE FORM, QD
     Route: 048
     Dates: start: 19980807
  43. PASPERTIN                          /00041902/ [Concomitant]
     Active Substance: METOCLOPRAMIDE HYDROCHLORIDE
     Dosage: 20 GTT DROPS
     Route: 048
     Dates: start: 19980821
  44. POTASSIUM CHLORIDE. [Concomitant]
     Active Substance: POTASSIUM CHLORIDE
     Dosage: 6 MILLIMOLE
     Route: 042
     Dates: start: 19980828, end: 19980828
  45. XANEF                              /00574902/ [Suspect]
     Active Substance: ENALAPRIL MALEATE
     Dosage: 10 MILLIGRAM, QD
     Route: 048
     Dates: start: 19980811, end: 19980817
  46. FRAGMIN P [Suspect]
     Active Substance: DALTEPARIN SODIUM
     Indication: THROMBOSIS PROPHYLAXIS
     Dosage: 1 DF, QD
     Route: 058
     Dates: start: 19980818
  47. PASPERTIN                          /00041902/ [Suspect]
     Active Substance: METOCLOPRAMIDE HYDROCHLORIDE
     Dosage: 1 VIAL PER DAY;
     Route: 042
  48. ACETYLSALICYLIC ACID [Suspect]
     Active Substance: ASPIRIN
     Indication: THROMBOSIS PROPHYLAXIS
     Dosage: 100 MILLIGRAM, QD
     Route: 048
  49. CARVEDILOL. [Suspect]
     Active Substance: CARVEDILOL
     Indication: HYPERTENSION
     Dosage: 13 MILLIGRAM, QD
     Route: 048
  50. CARVEDILOL. [Suspect]
     Active Substance: CARVEDILOL
     Dosage: 12.5 MILLIGRAM, QD
     Route: 048
  51. GLIBENCLAMIDE [Suspect]
     Active Substance: GLYBURIDE
     Indication: PRODUCT USED FOR UNKNOWN INDICATION
     Dosage: 1 DOSAGE FORM, QD
     Route: 048
     Dates: start: 19980820, end: 19980821
  52. PASPERTIN                          /00041902/ [Suspect]
     Active Substance: METOCLOPRAMIDE HYDROCHLORIDE
     Dosage: 20 DROP
     Route: 048
     Dates: start: 19980814, end: 19980818
  53. ZOCOR [Concomitant]
     Active Substance: SIMVASTATIN
     Indication: HYPERTENSION
     Dosage: 20 MG, QD
     Route: 048
     Dates: start: 19980803, end: 19980818
  54. PARACETAMOL [Concomitant]
     Active Substance: ACETAMINOPHEN
     Indication: ANALGESIC THERAPY
     Dosage: 500 MG (DAILY DOSE), , ORAL
     Route: 048
     Dates: start: 19980826
  55. AMINO ACIDS NOS W/ELECTROLYTES NOS/VITAMINS N [Concomitant]
     Indication: FLUID REPLACEMENT
     Route: 042
     Dates: start: 19980811, end: 19980817
  56. KALINOR-BRAUSETABLETTEN [Concomitant]
     Active Substance: POTASSIUM CARBONATE\POTASSIUM CITRATE
     Indication: BLOOD POTASSIUM DECREASED
     Dosage: 1 DF, QD
     Route: 048
     Dates: start: 19980821, end: 19980821
  57. TAGAMET [Concomitant]
     Active Substance: CIMETIDINE
     Indication: PROPHYLAXIS AGAINST GASTROINTESTINAL ULCER
     Dosage: 1 (DAILY DOSE), , INTRAVENOUS
     Route: 042
     Dates: start: 19980826, end: 19980826
  58. BEPANTHEN                          /00178901/ [Concomitant]
     Active Substance: DEXPANTHENOL
     Indication: CIRCULATORY COLLAPSE
     Dosage: 4 (DAILY DOSE), , INTRAVENOUS
     Route: 042
     Dates: start: 19980808, end: 19980808
  59. INSULIN [Concomitant]
     Active Substance: INSULIN NOS
     Indication: DIABETES MELLITUS
     Dosage: UNK
     Route: 058
  60. INSULIN ZINC SUSPENSION [Concomitant]
     Indication: DIABETES MELLITUS
     Dosage: UNK
     Route: 058
  61. TUTOFUSIN                          /06360801/ [Concomitant]
     Indication: FLUID REPLACEMENT
     Dosage: 1000 MILLILITER
     Route: 042
  62. NOVALGIN (METAMIZOLE SODIUM) [Suspect]
     Active Substance: METAMIZOLE SODIUM
     Indication: PAIN
     Dosage: 20 GTT, QD
     Route: 048
     Dates: start: 19980811, end: 19980811
  63. EUGLUCON [Suspect]
     Active Substance: GLYBURIDE
     Indication: DIABETES MELLITUS
     Dosage: 1 DF, QD
     Route: 048
     Dates: end: 19980818
  64. ISOKET [Suspect]
     Active Substance: ISOSORBIDE DINITRATE
     Indication: HYPERTENSION
     Dosage: 60 MG, QD
     Route: 048
     Dates: start: 19980818
  65. PASPERTIN                          /00041902/ [Suspect]
     Active Substance: METOCLOPRAMIDE HYDROCHLORIDE
     Indication: NAUSEA
     Dosage: 20 GTT, UNK
     Route: 048
  66. PASPERTIN                          /00041902/ [Suspect]
     Active Substance: METOCLOPRAMIDE HYDROCHLORIDE
     Dosage: 1 DOSAGE FORM
     Route: 048
     Dates: start: 19980820, end: 19980820
  67. PASPERTIN                          /00041902/ [Suspect]
     Active Substance: METOCLOPRAMIDE HYDROCHLORIDE
     Indication: PRODUCT USED FOR UNKNOWN INDICATION
     Dosage: DAILY DOSE=1 AMPULE
     Route: 042
     Dates: start: 19980808, end: 19980826
  68. ZIENAM [Concomitant]
     Active Substance: CILASTATIN SODIUM\IMIPENEM
     Indication: SEPSIS
     Dosage: 1500 MG, QD
     Route: 042
     Dates: start: 19980828
  69. AMINOQUINURIDE HYDROCHLORIDE [Concomitant]
     Dosage: 1 DOSAGE FORM, QD
     Route: 058
  70. ELECTROLYTES NOS [Concomitant]
     Active Substance: ELECTROLYTES NOS
     Indication: FLUID REPLACEMENT
     Dosage: 1000 ML, QD(THE PATIENT RECEIVED 4500 ML (APPROX.) OFSTEROFUNDIN OVER THIS PERIOD)
     Route: 042
     Dates: start: 19980821, end: 19980828
  71. KALIUMCHLORID [Concomitant]
     Active Substance: POTASSIUM CHLORIDE
     Dosage: 1 DOSAGE FORM, QD
     Route: 048
     Dates: start: 19980821, end: 19980821
  72. NOVODIGAL                          /00017701/ [Concomitant]
     Active Substance: DIGOXIN
     Indication: CARDIAC FAILURE
     Dosage: 0.2 MG, QD
     Route: 048
     Dates: end: 19980812
  73. PASPERTIN                          /00041902/ [Concomitant]
     Active Substance: METOCLOPRAMIDE HYDROCHLORIDE
     Indication: NAUSEA
     Dosage: 60 GTT DROPS, QD
     Route: 048
     Dates: start: 19980820, end: 19980820
  74. POTASSIUM CHLORIDE. [Concomitant]
     Active Substance: POTASSIUM CHLORIDE
     Dosage: 3 DOSAGE FORM, QD
     Route: 048
     Dates: start: 19980818, end: 19980820

REACTIONS (3)
  - Toxic epidermal necrolysis [Fatal]
  - Circulatory collapse [Fatal]
  - Septic shock [Fatal]

NARRATIVE: CASE EVENT DATE: 19980826
